FAERS Safety Report 5051182-2 (Version None)
Quarter: 2006Q3

REPORT INFORMATION
  Report Type: 
  Country: None (occurrence: None)
  Receive Date: 20060714
  Receipt Date: 20060706
  Transmission Date: 20061208
  Serious: Yes (Hospitalization)
  Sender: FDA-Public Use
  Company Number: AU-ROCHE-454177

PATIENT
  Age: 33 Year
  Sex: Female

DRUGS (6)
  1. VALIUM [Suspect]
     Route: 065
  2. LITHIUM CARBONATE [Suspect]
     Dosage: LONG TERM THERAPY.
     Route: 048
  3. RISPERDAL [Suspect]
     Route: 065
  4. HALOPERIDOL [Suspect]
     Indication: DRUG USE FOR UNKNOWN INDICATION
     Route: 065
  5. PROZAC [Suspect]
     Indication: DRUG USE FOR UNKNOWN INDICATION
     Route: 065
  6. LARGACTIL [Suspect]
     Indication: DRUG USE FOR UNKNOWN INDICATION
     Route: 065

REACTIONS (6)
  - ANXIETY [None]
  - CONFUSIONAL STATE [None]
  - FEELING ABNORMAL [None]
  - FRUSTRATION [None]
  - INSOMNIA [None]
  - SOMNOLENCE [None]
